FAERS Safety Report 16072616 (Version 1)
Quarter: 2019Q1

REPORT INFORMATION
  Report Type: Spontaneous
  Country: US (occurrence: US)
  Receive Date: 20190314
  Receipt Date: 20190314
  Transmission Date: 20190418
  Serious: No
  Sender: FDA-Public Use
  Company Number: US-MYLANLABS-2019M1018747

PATIENT

DRUGS (1)
  1. LIDOCAINE PATCH [Suspect]
     Active Substance: LIDOCAINE
     Indication: POST HERPETIC NEURALGIA
     Route: 003
     Dates: start: 20190222

REACTIONS (2)
  - Application site pruritus [Not Recovered/Not Resolved]
  - Application site erythema [Not Recovered/Not Resolved]

NARRATIVE: CASE EVENT DATE: 20190222
